FAERS Safety Report 11445961 (Version 1)
Quarter: 2015Q3

REPORT INFORMATION
  Report Type: Spontaneous
  Country: CH (occurrence: CH)
  Receive Date: 20150902
  Receipt Date: 20150902
  Transmission Date: 20151125
  Serious: Yes (Other)
  Sender: FDA-Public Use
  Company Number: CH-SA-2015SA129748

PATIENT
  Age: 75 Year
  Sex: Male

DRUGS (12)
  1. FRAGMIN [Suspect]
     Active Substance: DALTEPARIN SODIUM
     Indication: THROMBOSIS PROPHYLAXIS
     Route: 058
     Dates: start: 20150611, end: 20150614
  2. ASPIRIN CARDIO [Suspect]
     Active Substance: ASPIRIN
     Indication: PERIPHERAL ARTERIAL OCCLUSIVE DISEASE
     Route: 048
  3. BRILIQUE [Suspect]
     Active Substance: TICAGRELOR
     Indication: ACUTE MYOCARDIAL INFARCTION
     Route: 048
     Dates: start: 20150610, end: 20150612
  4. PIOGLITAZONE. [Concomitant]
     Active Substance: PIOGLITAZONE
  5. RENITEN [Concomitant]
  6. CIPRAMIL [Suspect]
     Active Substance: CITALOPRAM HYDROBROMIDE
     Indication: DEPRESSION
     Route: 048
  7. ALLOPURINOL. [Concomitant]
     Active Substance: ALLOPURINOL
  8. METFIN [Concomitant]
     Active Substance: METFORMIN HYDROCHLORIDE
  9. DIAMICRON [Concomitant]
     Active Substance: GLICLAZIDE
  10. ARIXTRA [Suspect]
     Active Substance: FONDAPARINUX SODIUM
     Indication: THROMBOSIS PROPHYLAXIS
     Route: 058
     Dates: start: 20150610, end: 20150610
  11. NITROGLYCERINE [Concomitant]
     Active Substance: NITROGLYCERIN
  12. PLAVIX [Suspect]
     Active Substance: CLOPIDOGREL BISULFATE
     Indication: ACUTE MYOCARDIAL INFARCTION
     Route: 048
     Dates: start: 20150613

REACTIONS (4)
  - Bladder tamponade [Recovered/Resolved]
  - Haemorrhagic anaemia [Unknown]
  - Contraindicated drug administered [Unknown]
  - Haematuria [Recovered/Resolved]

NARRATIVE: CASE EVENT DATE: 2015
